FAERS Safety Report 7787293-8 (Version None)
Quarter: 2011Q3

REPORT INFORMATION
  Report Type: 
  Country: None (occurrence: None)
  Receive Date: 20110929
  Receipt Date: 20110920
  Transmission Date: 20111222
  Serious: Yes (Other)
  Sender: FDA-Public Use
  Company Number: PHHY2011JP83840

PATIENT
  Age: 59 Year
  Sex: Female

DRUGS (1)
  1. RIFAMPIN [Suspect]
     Dates: start: 20110501, end: 20110501

REACTIONS (1)
  - INTERSTITIAL LUNG DISEASE [None]
